FAERS Safety Report 18817121 (Version 1)
Quarter: 2021Q1

REPORT INFORMATION
  Report Type: Spontaneous
  Country: IE (occurrence: IE)
  Receive Date: 20210201
  Receipt Date: 20210201
  Transmission Date: 20210419
  Serious: Yes (Hospitalization)
  Sender: FDA-Public Use
  Company Number: IE-ASTRAZENECA-2021A010473

PATIENT
  Age: 29 Year
  Sex: Male

DRUGS (6)
  1. ESOMEPRAZOLE. [Suspect]
     Active Substance: ESOMEPRAZOLE MAGNESIUM
     Indication: GASTRIC ULCER
     Route: 048
  2. LANSOPRAZOLE. [Suspect]
     Active Substance: LANSOPRAZOLE
     Indication: GASTRIC ULCER
     Route: 065
  3. IV PPI [Suspect]
     Active Substance: UNSPECIFIED INGREDIENT
     Indication: DUODENAL ULCER
     Route: 042
  4. LANSOPRAZOLE. [Suspect]
     Active Substance: LANSOPRAZOLE
     Indication: DUODENAL ULCER
     Route: 065
  5. ESOMEPRAZOLE. [Suspect]
     Active Substance: ESOMEPRAZOLE MAGNESIUM
     Indication: DUODENAL ULCER
     Route: 048
  6. IV PPI [Suspect]
     Active Substance: UNSPECIFIED INGREDIENT
     Indication: GASTRIC ULCER
     Route: 042

REACTIONS (2)
  - End stage renal disease [Not Recovered/Not Resolved]
  - Tubulointerstitial nephritis [Not Recovered/Not Resolved]
